FAERS Safety Report 23810555 (Version 1)
Quarter: 2024Q2

REPORT INFORMATION
  Report Type: Report from Study
  Country: CA (occurrence: CA)
  Receive Date: 20240502
  Receipt Date: 20240502
  Transmission Date: 20240715
  Serious: Yes (Death)
  Sender: FDA-Public Use
  Company Number: CA-MYLANLABS-2024M1018485

PATIENT
  Sex: Male

DRUGS (15)
  1. CLOZAPINE [Suspect]
     Active Substance: CLOZAPINE
     Indication: Product used for unknown indication
     Dosage: UNK
     Route: 065
     Dates: start: 201312
  2. CLOZAPINE [Suspect]
     Active Substance: CLOZAPINE
     Indication: Schizophrenia
     Dosage: 350 MILLIGRAM QHS
     Route: 048
     Dates: start: 20150721, end: 20161015
  3. CLOZAPINE [Suspect]
     Active Substance: CLOZAPINE
     Dosage: 262.5 MILLIGRAM QHS, 50 MILLIGRAM QSUPPER AND 50 MILLIGRAM QNOON
     Route: 048
     Dates: start: 20161015
  4. GLYBURIDE [Concomitant]
     Active Substance: GLYBURIDE
     Dosage: 5 MILLIGRAM, QD (QAM)
     Route: 048
     Dates: start: 20161015
  5. GLYBURIDE [Concomitant]
     Active Substance: GLYBURIDE
     Dosage: 2.5 MILLIGRAM, QD (QAM)
     Route: 048
     Dates: start: 20170525
  6. VITAMIN D [Concomitant]
     Active Substance: VITAMIN D NOS
     Dosage: 1000 INTERNATIONAL UNIT, QD
     Route: 048
     Dates: start: 20161015, end: 20171107
  7. FISH OIL [Concomitant]
     Active Substance: FISH OIL
     Dosage: 1200 MILLIGRAM, QD (ONCE DAILY)
     Route: 048
     Dates: start: 20161015, end: 20171107
  8. RAMIPRIL [Concomitant]
     Active Substance: RAMIPRIL
     Dosage: 5 MILLIGRAM (QHS AND QAM)
     Route: 048
     Dates: start: 20161015
  9. BISOPROLOL [Concomitant]
     Active Substance: BISOPROLOL\BISOPROLOL FUMARATE
     Dosage: 5 MILLIGRAM, QD (QAM)
     Route: 048
     Dates: start: 20161015
  10. METFORMIN [Concomitant]
     Active Substance: METFORMIN HYDROCHLORIDE
     Dosage: 1000 MILLIGRAM, BID
     Route: 048
     Dates: start: 20161015
  11. LOXAPINE [Concomitant]
     Active Substance: LOXAPINE
     Dosage: 25 MILLIGRAM (QSUPPER)
     Route: 048
     Dates: start: 20161015
  12. ATORVASTATIN [Concomitant]
     Active Substance: ATORVASTATIN
     Dosage: 20 MILLIGRAM, QD (QAM)
     Route: 048
     Dates: start: 20161015
  13. DOCUSATE [Concomitant]
     Active Substance: DOCUSATE
     Dosage: 200 MILLIGRAM (QAM AND QHS)
     Route: 048
     Dates: start: 20161015
  14. RANITIDINE [Concomitant]
     Active Substance: RANITIDINE
     Dosage: 300 MILLIGRAM, QD (QAM)
     Route: 048
     Dates: start: 20161015
  15. LINAGLIPTIN [Concomitant]
     Active Substance: LINAGLIPTIN
     Dosage: 5 MILLIGRAM, QD (QAM)
     Route: 048
     Dates: start: 20161015

REACTIONS (1)
  - Myocardial infarction [Fatal]
